FAERS Safety Report 8693419 (Version 2)
Quarter: 2012Q4

REPORT INFORMATION
  Report Type: 
  Country: DE (occurrence: DE)
  Receive Date: 20120730
  Receipt Date: 20121012
  Transmission Date: 20130627
  Serious: Yes (Other)
  Sender: FDA-Public Use
  Company Number: DE-BAXTER-2012BAX012050

PATIENT
  Sex: Female

DRUGS (3)
  1. KIOVIG [Suspect]
     Indication: KAWASAKI^S DISEASE
     Dates: start: 20120627, end: 20120628
  2. KIOVIG [Suspect]
     Dates: start: 20120627, end: 20120628
  3. KIOVIG [Suspect]
     Indication: KAWASAKI^S DISEASE
     Dates: start: 20120626, end: 20120627

REACTIONS (3)
  - Hepatitis A antibody positive [Unknown]
  - Hepatitis B core antibody positive [Unknown]
  - Hepatitis B surface antibody positive [Unknown]
